FAERS Safety Report 14410512 (Version 1)
Quarter: 2018Q1

REPORT INFORMATION
  Report Type: Spontaneous
  Country: TR (occurrence: TR)
  Receive Date: 20180119
  Receipt Date: 20180119
  Transmission Date: 20180509
  Serious: Yes (Other)
  Sender: FDA-Public Use
  Company Number: TR-ROCHE-2059409

PATIENT
  Age: 55 Year
  Sex: Female

DRUGS (2)
  1. RANIBIZUMAB. [Suspect]
     Active Substance: RANIBIZUMAB
     Indication: AGE-RELATED MACULAR DEGENERATION
     Dosage: (0.5 MG/0.05 ML).?THREE MONTH LOADING DOSE
     Route: 031
  2. AFLIBERCEPT [Concomitant]
     Active Substance: AFLIBERCEPT
     Dosage: (2 MG/0.05 ML).
     Route: 065

REACTIONS (2)
  - Detachment of retinal pigment epithelium [Recovered/Resolved]
  - Tachyphylaxis [Recovered/Resolved]
